FAERS Safety Report 7436799-X (Version None)
Quarter: 2011Q2

REPORT INFORMATION
  Report Type: 
  Country: None (occurrence: None)
  Receive Date: 20110426
  Receipt Date: 20110420
  Transmission Date: 20111010
  Serious: No
  Sender: FDA-Public Use
  Company Number: US-PFIZER INC-2011086802

PATIENT
  Sex: Female
  Weight: 43.084 kg

DRUGS (2)
  1. PREMARIN [Suspect]
     Indication: VAGINAL CYST EXCISION
  2. PREMARIN [Suspect]
     Indication: OFF LABEL USE
     Dosage: 3 TO 4 TIMES A DAY
     Route: 067
     Dates: start: 20110415

REACTIONS (4)
  - CHEST PAIN [None]
  - BREAST PAIN [None]
  - PAIN IN EXTREMITY [None]
  - RASH [None]
